FAERS Safety Report 7455362-8 (Version None)
Quarter: 2011Q2

REPORT INFORMATION
  Report Type: 
  Country: None (occurrence: None)
  Receive Date: 20110503
  Receipt Date: 20110420
  Transmission Date: 20111010
  Serious: Yes (Other)
  Sender: FDA-Public Use
  Company Number: KR-TYCO HEALTHCARE/MALLINCKRODT-T201100826

PATIENT
  Age: 51 Year
  Sex: Female

DRUGS (1)
  1. SODIUM IODIDE I 131 [Suspect]
     Indication: RADIOACTIVE IODINE THERAPY
     Dosage: 150 MCI, SINGLE
     Dates: start: 19931101, end: 19931101

REACTIONS (1)
  - DYSTROPHIC CALCIFICATION [None]
